FAERS Safety Report 23905738 (Version 1)
Quarter: 2024Q2

REPORT INFORMATION
  Report Type: Spontaneous
  Country: JP (occurrence: JP)
  Receive Date: 20240527
  Receipt Date: 20240527
  Transmission Date: 20240716
  Serious: Yes (Hospitalization, Other)
  Sender: FDA-Public Use
  Company Number: JP-KYOWAKIRIN-2024KK010253

PATIENT

DRUGS (1)
  1. FARESTON [Suspect]
     Active Substance: TOREMIFENE CITRATE
     Indication: Product used for unknown indication
     Dosage: TAB 40
     Route: 065

REACTIONS (1)
  - Pulmonary toxicity [Recovered/Resolved]
